FAERS Safety Report 10690934 (Version 1)
Quarter: 2015Q1

REPORT INFORMATION
  Report Type: Spontaneous
  Country: US (occurrence: None)
  Receive Date: 20150102
  Receipt Date: 20150102
  Transmission Date: 20150720
  Serious: Yes (Hospitalization, Other)
  Sender: FDA-Public Use
  Company Number: US-ZYDUS-006167

PATIENT
  Age: 16 Year
  Sex: Male

DRUGS (1)
  1. AMLODIPINE [Suspect]
     Active Substance: AMLODIPINE BESYLATE
     Dosage: 300.00-MG-/ ORAL
     Route: 048

REACTIONS (4)
  - Intentional overdose [None]
  - Distributive shock [None]
  - Toxicity to various agents [None]
  - Plasmapheresis [None]
